FAERS Safety Report 16179640 (Version 1)
Quarter: 2019Q2

REPORT INFORMATION
  Report Type: Spontaneous
  Country: US (occurrence: US)
  Receive Date: 20190410
  Receipt Date: 20190410
  Transmission Date: 20190711
  Serious: No
  Sender: FDA-Public Use
  Company Number: US-FERRINGPH-2018FE05679

PATIENT
  Age: 50 Year
  Sex: Male
  Weight: 82 kg

DRUGS (2)
  1. FIRMAGON [Suspect]
     Active Substance: DEGARELIX ACETATE
     Indication: PROSTATE CANCER
     Dosage: 240 MG, ONCE/SINGLE AS 2 INJECTION SOF 120MG
     Route: 058
     Dates: start: 20180205, end: 20180205
  2. FIRMAGON [Suspect]
     Active Substance: DEGARELIX ACETATE
     Indication: PREOPERATIVE HORMONE TREATMENT

REACTIONS (3)
  - Off label use [Unknown]
  - Antiandrogen therapy [Not Recovered/Not Resolved]
  - Weight increased [Unknown]

NARRATIVE: CASE EVENT DATE: 2018
